FAERS Safety Report 15197281 (Version 1)
Quarter: 2018Q3

REPORT INFORMATION
  Report Type: Not Available
  Country: US (occurrence: US)
  Receive Date: 20180725
  Receipt Date: 20180725
  Transmission Date: 20181010
  Serious: No
  Sender: FDA-Public Use
  Company Number: US-NEUROCRINE BIOSCIENCES INC.-2018NBI02177

PATIENT
  Age: 68 Year
  Sex: Male

DRUGS (11)
  1. FLUPHENAZINE [Concomitant]
     Active Substance: FLUPHENAZINE
  2. SIMVASTATIN. [Concomitant]
     Active Substance: SIMVASTATIN
  3. WARFARIN [Concomitant]
     Active Substance: WARFARIN
  4. BENZTROPINE. [Concomitant]
     Active Substance: BENZTROPINE
  5. INGREZZA [Suspect]
     Active Substance: VALBENAZINE
     Indication: TARDIVE DYSKINESIA
     Route: 048
     Dates: start: 20180606, end: 20180702
  6. METOPROLOL. [Concomitant]
     Active Substance: METOPROLOL
  7. NITROSTAT [Concomitant]
     Active Substance: NITROGLYCERIN
  8. AMBIEN [Concomitant]
     Active Substance: ZOLPIDEM TARTRATE
  9. FAMOTIDINE. [Concomitant]
     Active Substance: FAMOTIDINE
  10. METFORMIN [Concomitant]
     Active Substance: METFORMIN HYDROCHLORIDE
  11. RISPERIDONE. [Concomitant]
     Active Substance: RISPERIDONE

REACTIONS (1)
  - Dizziness [Unknown]

NARRATIVE: CASE EVENT DATE: 20180615
